FAERS Safety Report 10348736 (Version 2)
Quarter: 2017Q2

REPORT INFORMATION
  Report Type: Report from Study
  Country: None (occurrence: AR)
  Receive Date: 20140729
  Receipt Date: 20170424
  Transmission Date: 20170829
  Serious: Yes (Other)
  Sender: FDA-Public Use
  Company Number: AR-ABBVIE-14P-007-1263750-00

PATIENT
  Age: 45 Year
  Sex: Female

DRUGS (1)
  1. HUMIRA [Suspect]
     Active Substance: ADALIMUMAB
     Indication: CROHN^S DISEASE
     Route: 058
     Dates: start: 20120918

REACTIONS (17)
  - Headache [Recovered/Resolved]
  - Intestinal stenosis [Recovered/Resolved]
  - Injection site reaction [Recovered/Resolved]
  - Decreased appetite [Recovered/Resolved]
  - Erythema [Recovered/Resolved]
  - Injection site warmth [Recovered/Resolved]
  - Intestinal perforation [Unknown]
  - Injection site reaction [Recovered/Resolved]
  - Pruritus [Recovered/Resolved]
  - Injection site erythema [Recovered/Resolved]
  - Hypotension [Recovered/Resolved]
  - Injection site pain [Recovered/Resolved]
  - Drug administered at inappropriate site [Unknown]
  - Dizziness [Recovered/Resolved]
  - Injection related reaction [Recovered/Resolved]
  - Injection site swelling [Recovered/Resolved]
  - Drug administered at inappropriate site [Unknown]

NARRATIVE: CASE EVENT DATE: 20140411
